FAERS Safety Report 16267698 (Version 1)
Quarter: 2019Q2

REPORT INFORMATION
  Report Type: Spontaneous
  Country: CA (occurrence: CA)
  Receive Date: 20190503
  Receipt Date: 20190503
  Transmission Date: 20190711
  Serious: Yes (Other)
  Sender: FDA-Public Use
  Company Number: CA-ORION CORPORATION ORION PHARMA-TREX2019-1329

PATIENT
  Age: 47 Year
  Sex: Female

DRUGS (6)
  1. METHOTREXATE (TRADE NAME UNKNOWN) [Suspect]
     Active Substance: METHOTREXATE
     Route: 065
     Dates: start: 201512, end: 201701
  2. MELOXICAM. [Concomitant]
     Active Substance: MELOXICAM
     Route: 065
  3. METHOTREXATE (TRADE NAME UNKNOWN) [Suspect]
     Active Substance: METHOTREXATE
     Route: 065
     Dates: start: 201110, end: 201510
  4. HYDROXYCHLOROQUINE [Concomitant]
     Active Substance: HYDROXYCHLOROQUINE
     Indication: RHEUMATOID ARTHRITIS
     Route: 065
     Dates: start: 200605, end: 201811
  5. METHOTREXATE (TRADE NAME UNKNOWN) [Suspect]
     Active Substance: METHOTREXATE
     Indication: RHEUMATOID ARTHRITIS
     Route: 065
     Dates: start: 200504, end: 201101
  6. LYRICA [Concomitant]
     Active Substance: PREGABALIN
     Route: 065

REACTIONS (5)
  - Neuropathy peripheral [Unknown]
  - Fatigue [Unknown]
  - Therapeutic response decreased [Unknown]
  - Drug intolerance [Unknown]
  - Nausea [Unknown]
